FAERS Safety Report 6302896-5 (Version None)
Quarter: 2009Q3

REPORT INFORMATION
  Report Type: 
  Country: None (occurrence: None)
  Receive Date: 20090810
  Receipt Date: 20090804
  Transmission Date: 20100115
  Serious: Yes (Other)
  Sender: FDA-Public Use
  Company Number: US-KINGPHARMUSA00001-K200900924

PATIENT
  Age: 53 Year
  Sex: Female

DRUGS (14)
  1. TAPAZOLE [Suspect]
     Indication: HYPERTHYROIDISM
     Dosage: 30 MG, QD
  2. TAPAZOLE [Suspect]
     Indication: BASEDOW'S DISEASE
     Dosage: 20 MG, QD
  3. VENLAFAXINE HYDROCHLORIDE [Suspect]
     Indication: MAJOR DEPRESSION
     Dosage: 150 MG, QD
  4. VENLAFAXINE HYDROCHLORIDE [Suspect]
     Dosage: 75 MG, QD
  5. VENLAFAXINE HYDROCHLORIDE [Suspect]
     Dosage: 112.5 MG, QD
  6. AMLODIPINE [Concomitant]
     Dosage: 5 MG, QD
  7. BISOPROLOL [Concomitant]
     Dosage: 5 MG, QD
  8. CLOPIDOGREL [Concomitant]
     Dosage: 75 MG, QD
  9. GLIPIZIDE [Concomitant]
     Dosage: 10 MG, QD
  10. MONTELUKAST [Concomitant]
     Dosage: 10 MG, QD
  11. FLUTICASONE [Concomitant]
     Dosage: UNK
  12. LANSOPRAZOLE [Concomitant]
     Dosage: 30 MG, QD
  13. ALPRAZOLAM [Concomitant]
     Dosage: 1 MG, TID
  14. PREDNISONE TAB [Concomitant]
     Dosage: 5 MG, QD

REACTIONS (5)
  - AKATHISIA [None]
  - DRUG INTERACTION [None]
  - DYSKINESIA [None]
  - PSYCHOMOTOR HYPERACTIVITY [None]
  - RESTLESSNESS [None]
